FAERS Safety Report 7327372-2 (Version None)
Quarter: 2011Q1

REPORT INFORMATION
  Report Type: 
  Country: None (occurrence: None)
  Receive Date: 20110302
  Receipt Date: 20110204
  Transmission Date: 20110831
  Serious: No
  Sender: FDA-Public Use
  Company Number: US-B.I. PHARMACEUTICALS,INC./RIDGEFIELD-2011-BP-03381BP

PATIENT
  Sex: Female

DRUGS (9)
  1. FLECAINIDE ACETATE [Concomitant]
     Indication: ATRIAL FIBRILLATION
     Dates: start: 20110201
  2. ACETAMINOPHEN [Concomitant]
     Indication: ARTHRITIS
  3. AMLODIPINE [Concomitant]
     Indication: HYPERTENSION
     Dates: start: 20110201
  4. CITRACAL [Concomitant]
     Indication: OSTEOPENIA
  5. PRADAXA [Suspect]
     Indication: ATRIAL FIBRILLATION
     Dosage: 300 MG
     Route: 048
     Dates: start: 20110126
  6. LOSARTAN POTASSIUM [Concomitant]
     Indication: HYPERTENSION
     Dates: start: 20110201
  7. MULTIVITAMIN [Concomitant]
     Indication: PROPHYLAXIS
  8. PRILOSEC [Concomitant]
     Indication: PROPHYLAXIS
  9. TOPROL-XL [Concomitant]
     Indication: HYPERTENSION

REACTIONS (1)
  - HEADACHE [None]
